FAERS Safety Report 5098338-0 (Version None)
Quarter: 2006Q3

REPORT INFORMATION
  Report Type: 
  Country: None (occurrence: None)
  Receive Date: 20060906
  Receipt Date: 20060831
  Transmission Date: 20061208
  Serious: Yes (Hospitalization, Other)
  Sender: FDA-Public Use
  Company Number: US-JNJFOC-20060606711

PATIENT
  Sex: Female

DRUGS (9)
  1. REMICADE [Suspect]
     Indication: RHEUMATOID ARTHRITIS
     Route: 042
  2. BONIVA [Concomitant]
  3. DHEA [Concomitant]
  4. MULTI-ENZYMES [Concomitant]
  5. CALCIUM GLUCONATE [Concomitant]
     Dosage: 220 MG 5 TABLETS DAILY
  6. GLUCOSAMINE/MSM [Concomitant]
  7. CHONDROITIN [Concomitant]
  8. GROWTH HORMONE [Concomitant]
     Indication: CARDIAC DISORDER
  9. XALATAN [Concomitant]
     Dosage: .005 DAILY

REACTIONS (1)
  - BREAST CANCER [None]
